FAERS Safety Report 15809172 (Version 2)
Quarter: 2020Q1

REPORT INFORMATION
  Report Type: Spontaneous
  Country: US (occurrence: US)
  Receive Date: 20190110
  Receipt Date: 20200130
  Transmission Date: 20200409
  Serious: Yes (Other)
  Sender: FDA-Public Use
  Company Number: US-009507513-1901USA000219

PATIENT
  Age: 64 Year
  Sex: Male
  Weight: 95.7 kg

DRUGS (9)
  1. AMANTADINE. [Interacting]
     Active Substance: AMANTADINE HYDROCHLORIDE
     Indication: DYSKINESIA
     Dosage: 137 MG, 1X DAY AT BED TIME
     Route: 048
     Dates: start: 20180726, end: 20180801
  2. DIVALPROEX SODIUM. [Concomitant]
     Active Substance: DIVALPROEX SODIUM
     Dosage: 250 MILLIGRAM
     Dates: end: 20191125
  3. SINEMET [Suspect]
     Active Substance: CARBIDOPA\LEVODOPA
     Dosage: UNK
     Dates: start: 201812, end: 2019
  4. AMANTADINE. [Interacting]
     Active Substance: AMANTADINE HYDROCHLORIDE
     Dosage: 274 MG, 1X DAY AT BED TIME
     Route: 048
     Dates: start: 20180802
  5. AMANTADINE. [Interacting]
     Active Substance: AMANTADINE HYDROCHLORIDE
     Dosage: UNK
     Dates: start: 20190726, end: 2019
  6. ESCITALOPRAM [Concomitant]
     Active Substance: ESCITALOPRAM OXALATE
     Dosage: 20 MILLIGRAM
  7. SINEMET [Interacting]
     Active Substance: CARBIDOPA\LEVODOPA
     Dosage: UNK
     Dates: start: 201911
  8. BENADRYL ALLERGY [Concomitant]
     Active Substance: DIPHENHYDRAMINE HYDROCHLORIDE
     Dosage: 25 MILLIGRAM
     Dates: end: 20191126
  9. DEPAKOTE [Concomitant]
     Active Substance: DIVALPROEX SODIUM

REACTIONS (14)
  - Gait disturbance [Recovered/Resolved]
  - Mobility decreased [Unknown]
  - Loss of personal independence in daily activities [Unknown]
  - Drug ineffective [Recovering/Resolving]
  - Drug interaction [Recovering/Resolving]
  - Dyskinesia [Unknown]
  - Bronchitis [Unknown]
  - Balance disorder [Unknown]
  - Scratch [Unknown]
  - Fall [Unknown]
  - Therapeutic product effect decreased [Not Recovered/Not Resolved]
  - Micturition urgency [Not Recovered/Not Resolved]
  - Tremor [Recovering/Resolving]
  - Product dose omission [Unknown]

NARRATIVE: CASE EVENT DATE: 2018
